FAERS Safety Report 8453546-3 (Version None)
Quarter: 2012Q2

REPORT INFORMATION
  Report Type: 
  Country: None (occurrence: None)
  Receive Date: 20120620
  Receipt Date: 20120613
  Transmission Date: 20120825
  Serious: Yes (Death)
  Sender: FDA-Public Use
  Company Number: US-CELGENEUS-163-21880-12051580

PATIENT
  Sex: Male

DRUGS (14)
  1. MS CONTIN [Concomitant]
     Dosage: 30 MILLIGRAM
     Route: 048
  2. VINCRISTINE SULFATE [Concomitant]
     Indication: MULTIPLE MYELOMA
     Route: 065
     Dates: start: 20120101
  3. HYDROCHLOROTHIAZIDE [Concomitant]
     Dosage: 25 MILLIGRAM
     Route: 048
  4. HYDROCODONE BITARTRATE + ACETAMINOPHEN [Concomitant]
     Indication: PAIN
     Dosage: 10-325MG
     Route: 048
  5. REVLIMID [Suspect]
     Indication: MULTIPLE MYELOMA
     Dosage: 25 MILLIGRAM
     Route: 048
     Dates: start: 20110809
  6. BARACLUDE [Concomitant]
     Dosage: .5 MILLIGRAM
     Route: 048
  7. DEXAMETHASONE [Concomitant]
     Indication: MULTIPLE MYELOMA
     Dosage: 4 MILLIGRAM
     Route: 048
  8. LYRICA [Concomitant]
     Dosage: 75 MILLIGRAM
     Route: 048
  9. GABAPENTIN [Concomitant]
     Dosage: 300 MILLIGRAM
     Route: 048
  10. PROMETHAZINE HCL [Concomitant]
     Indication: NAUSEA
     Dosage: 25 MILLIGRAM
     Route: 048
  11. VELCADE [Concomitant]
     Indication: MULTIPLE MYELOMA
     Route: 065
  12. LOTREL [Concomitant]
     Indication: PAIN
     Route: 048
  13. ZOFRAN [Concomitant]
     Indication: NAUSEA
     Dosage: 8 MILLIGRAM
     Route: 048
  14. ADRIAMYCIN PFS [Concomitant]
     Indication: MULTIPLE MYELOMA
     Route: 065
     Dates: start: 20120101

REACTIONS (1)
  - MULTIPLE MYELOMA [None]
